FAERS Safety Report 4870846-4 (Version None)
Quarter: 2006Q1

REPORT INFORMATION
  Report Type: 
  Country: None (occurrence: None)
  Receive Date: 20060103
  Receipt Date: 20051005
  Transmission Date: 20060701
  Serious: Yes (Hospitalization, Other)
  Sender: FDA-Public Use
  Company Number: US-MERCK-0510USA04749

PATIENT
  Age: 92 Year
  Sex: Female
  Weight: 84 kg

DRUGS (1)
  1. VIOXX [Suspect]
     Indication: ARTHROPATHY
     Route: 048
     Dates: start: 19990201, end: 20000101

REACTIONS (26)
  - ANAEMIA [None]
  - ARTERIOSCLEROSIS [None]
  - ARTHRALGIA [None]
  - ASTHMA [None]
  - BRONCHITIS [None]
  - BRONCHITIS ACUTE [None]
  - CARDIAC FAILURE CONGESTIVE [None]
  - CARDIAC VALVE DISEASE [None]
  - CEREBROVASCULAR ACCIDENT [None]
  - CHOLECYSTITIS [None]
  - COLONIC POLYP [None]
  - FALL [None]
  - GASTRIC POLYPS [None]
  - GASTROOESOPHAGEAL REFLUX DISEASE [None]
  - HAEMORRHOIDS [None]
  - HYPERTENSIVE CARDIOMYOPATHY [None]
  - HYPERTENSIVE HEART DISEASE [None]
  - INFLUENZA [None]
  - LACUNAR INFARCTION [None]
  - MYOCARDIAL INFARCTION [None]
  - RENAL CYST [None]
  - RENAL DISORDER [None]
  - URETHRAL CARUNCLE [None]
  - UTERINE LEIOMYOMA [None]
  - VAGINAL HAEMORRHAGE [None]
  - VIRAL INFECTION [None]
